FAERS Safety Report 7668422-3 (Version None)
Quarter: 2011Q3

REPORT INFORMATION
  Report Type: 
  Country: None (occurrence: None)
  Receive Date: 20110808
  Receipt Date: 20110727
  Transmission Date: 20111222
  Serious: Yes (Hospitalization)
  Sender: FDA-Public Use
  Company Number: BE-ELI_LILLY_AND_COMPANY-BE201108000204

PATIENT
  Sex: Male

DRUGS (13)
  1. BEVACIZUMAB [Suspect]
     Dosage: 390 MG, ONCE PER 3 WEEKS
     Route: 042
     Dates: start: 20081106
  2. CARBAMAZEPINE [Concomitant]
     Dosage: UNK
     Dates: start: 20060425, end: 20081229
  3. ONDANSETRON [Concomitant]
     Dosage: UNK
     Dates: start: 20081009, end: 20081106
  4. GEMCITABINE HYDROCHLORIDE [Suspect]
     Dosage: 1608 MG, UNK
     Route: 042
     Dates: start: 20081106
  5. BROMAZEPAM [Concomitant]
     Dosage: UNK
     Dates: start: 20060425, end: 20081230
  6. ACETAMINOPHEN [Concomitant]
     Dosage: UNK
     Dates: start: 20081001, end: 20090102
  7. ZOFRAN [Concomitant]
     Dosage: UNK
     Dates: start: 20081009, end: 20081106
  8. METHYLPREDNISOLONE [Concomitant]
     Dosage: UNK
     Dates: start: 20081009, end: 20081106
  9. CARBOPLATIN [Suspect]
     Indication: LUNG NEOPLASM MALIGNANT
     Dosage: UNK, ONCE PER 3 WEEKS
     Route: 042
     Dates: start: 20081009
  10. RISPERIDONE [Concomitant]
     Dosage: UNK
     Dates: start: 20060425, end: 20081229
  11. BEVACIZUMAB [Suspect]
     Indication: LUNG NEOPLASM MALIGNANT
     Dosage: 390 MG, ONCE PER 3 WEEKS
     Route: 042
     Dates: start: 20081009, end: 20081001
  12. DEXAMETHASONE [Concomitant]
     Dosage: UNK
     Dates: start: 20081009, end: 20081106
  13. GEMCITABINE HYDROCHLORIDE [Suspect]
     Indication: LUNG NEOPLASM MALIGNANT
     Dosage: 1971 MG, UNKNOWN
     Route: 042
     Dates: start: 20081009, end: 20081001

REACTIONS (2)
  - PNEUMONIA [None]
  - NEUTROPENIA [None]
